FAERS Safety Report 16900220 (Version 1)
Quarter: 2019Q4

REPORT INFORMATION
  Report Type: Spontaneous
  Country: US (occurrence: US)
  Receive Date: 20190816
  Receipt Date: 20190816
  Transmission Date: 20200122
  Serious: No
  Sender: FDA-Public Use
  Company Number: None

PATIENT
  Age: 74 Year
  Sex: Female
  Weight: 95 kg

DRUGS (4)
  1. CARBOPLATIN. [Suspect]
     Active Substance: CARBOPLATIN
     Dates: end: 20190725
  2. TAXOL [Suspect]
     Active Substance: PACLITAXEL
     Dates: end: 20190731
  3. CYCLOPHOSPHAMIDE. [Suspect]
     Active Substance: CYCLOPHOSPHAMIDE
     Dates: end: 20190515
  4. DOXORUBICIN HYDROCHLORIDE. [Suspect]
     Active Substance: DOXORUBICIN HYDROCHLORIDE
     Dates: end: 20190515

REACTIONS (6)
  - Hypotension [None]
  - Transfusion [None]
  - Coronary artery disease [None]
  - Gastric ulcer [None]
  - Anaemia [None]
  - Hiatus hernia [None]

NARRATIVE: CASE EVENT DATE: 20190806
